FAERS Safety Report 14974271 (Version 1)
Quarter: 2018Q2

REPORT INFORMATION
  Report Type: Spontaneous
  Country: US (occurrence: US)
  Receive Date: 20180605
  Receipt Date: 20180605
  Transmission Date: 20180711
  Serious: No
  Sender: FDA-Public Use
  Company Number: US-BIOMARINAP-US-2018-117258

PATIENT
  Sex: Female
  Weight: 7.6 kg

DRUGS (1)
  1. NAGLAZYME [Suspect]
     Active Substance: GALSULFASE
     Indication: MUCOPOLYSACCHARIDOSIS VI
     Dosage: UNK, QW
     Route: 042
     Dates: start: 20180111

REACTIONS (4)
  - Myopia [Unknown]
  - Muscular weakness [Unknown]
  - Astigmatism [Unknown]
  - Middle ear effusion [Unknown]
